FAERS Safety Report 8300858-X (Version None)
Quarter: 2012Q1

REPORT INFORMATION
  Report Type: 
  Country: None (occurrence: None)
  Receive Date: 20120326
  Receipt Date: 20110713
  Transmission Date: 20120608
  Serious: Yes (Hospitalization)
  Sender: FDA-Public Use
  Company Number: PHHY2011US62423

PATIENT
  Age: 72 Year
  Sex: Male

DRUGS (2)
  1. TASIGNA [Suspect]
     Dosage: 400 MG, BID, ORAL
     Route: 048
     Dates: start: 20100701
  2. FUROSEMIDE [Concomitant]

REACTIONS (3)
  - OEDEMA PERIPHERAL [None]
  - ABDOMINAL DISTENSION [None]
  - PLEURAL EFFUSION [None]
